FAERS Safety Report 8620946-8 (Version None)
Quarter: 2012Q3

REPORT INFORMATION
  Report Type: 
  Country: None (occurrence: None)
  Receive Date: 20120824
  Receipt Date: 20120816
  Transmission Date: 20120928
  Serious: Yes (Hospitalization, Other)
  Sender: FDA-Public Use
  Company Number: CA-BAXTER-2012BAX014742

PATIENT
  Age: 80 Year
  Sex: Male

DRUGS (5)
  1. COZAAR [Concomitant]
     Indication: HYPERTENSION
     Route: 048
  2. DIANEAL LOW CALCIUM WITH DEXTROSE 1.5% AND CALCIUM 2.5MEQ/L [Suspect]
     Route: 033
  3. DIANEAL PD4 SOLUTION WITH 4.25% DEXTROSE AND 2.5 MEQ/L CALCIUM [Suspect]
     Route: 033
  4. DIANEAL LOW CALCIUM WITH DEXTROSE 2.5% AND CALCIUM 2.5MEQ/L [Suspect]
     Route: 033
  5. DIANEAL PD101 SOLUTION WITH 1.5% DEXTROSE [Suspect]
     Route: 033

REACTIONS (4)
  - PERITONITIS [None]
  - LOSS OF CONSCIOUSNESS [None]
  - ASTHENIA [None]
  - MALAISE [None]
